FAERS Safety Report 8351951-7 (Version None)
Quarter: 2012Q2

REPORT INFORMATION
  Report Type: 
  Country: None (occurrence: None)
  Receive Date: 20120510
  Receipt Date: 20120510
  Transmission Date: 20120825
  Serious: Yes (Hospitalization)
  Sender: FDA-Public Use
  Company Number: None

PATIENT
  Sex: Male
  Weight: 103 kg

DRUGS (2)
  1. CISPLATIN [Suspect]
     Dosage: 187.2 MG
  2. ETOPOSIDE [Suspect]
     Dosage: 702 MG

REACTIONS (2)
  - BACK PAIN [None]
  - NEUTROPENIA [None]
